FAERS Safety Report 25573902 (Version 1)
Quarter: 2025Q3

REPORT INFORMATION
  Report Type: Report from Study
  Country: GB (occurrence: GB)
  Receive Date: 20250717
  Receipt Date: 20250717
  Transmission Date: 20251020
  Serious: Yes (Other)
  Sender: ABBVIE
  Company Number: GB-ABBVIE-6372102

PATIENT
  Age: 49 Year
  Sex: Female

DRUGS (1)
  1. HUMIRA [Suspect]
     Active Substance: ADALIMUMAB
     Indication: Hidradenitis
     Dosage: 2 PRE-FILLED DISPOSABLE INJECTION
     Route: 058
     Dates: start: 20230424, end: 202505

REACTIONS (4)
  - Ear neoplasm [Unknown]
  - Product storage error [Unknown]
  - Shoulder operation [Unknown]
  - Cyst [Unknown]

NARRATIVE: CASE EVENT DATE: 20250601
